FAERS Safety Report 24778210 (Version 1)
Quarter: 2024Q4

REPORT INFORMATION
  Report Type: Spontaneous
  Country: US (occurrence: US)
  Receive Date: 20241226
  Receipt Date: 20241226
  Transmission Date: 20250114
  Serious: Yes (Life-Threatening, Hospitalization)
  Sender: MYLAN
  Company Number: US-MYLANLABS-2024M1114506

PATIENT
  Age: 3 Month
  Sex: Male

DRUGS (3)
  1. AMIODARONE [Interacting]
     Active Substance: AMIODARONE
     Indication: Supraventricular tachycardia
     Dosage: 2 MILLIGRAM/KILOGRAM, QD
     Route: 065
  2. FLECAINIDE [Interacting]
     Active Substance: FLECAINIDE
     Indication: Supraventricular tachycardia
     Dosage: 80 MILLIGRAM/SQ. METER, QD
     Route: 065
  3. FLECAINIDE [Interacting]
     Active Substance: FLECAINIDE
     Dosage: 60 MILLIGRAM/SQ. METER, QD
     Route: 065

REACTIONS (9)
  - Labelled drug-drug interaction medication error [Unknown]
  - Toxicity to various agents [Unknown]
  - Respiratory distress [Unknown]
  - Bradycardia [Recovering/Resolving]
  - Electrocardiogram QRS complex prolonged [Recovered/Resolved]
  - Metabolic acidosis [Unknown]
  - Hypophagia [Unknown]
  - Lethargy [Unknown]
  - Off label use [Unknown]
